FAERS Safety Report 4571285-6 (Version None)
Quarter: 2005Q1

REPORT INFORMATION
  Report Type: 
  Country: None (occurrence: None)
  Receive Date: 20050202
  Receipt Date: 20050126
  Transmission Date: 20050727
  Serious: Yes (Other)
  Sender: FDA-Public Use
  Company Number: 230239K05USA

PATIENT
  Age: 42 Year
  Sex: Female

DRUGS (8)
  1. REBIF [Suspect]
     Indication: MULTIPLE SCLEROSIS
     Dosage: 44 MCG, 3 IN 1 WEEKS, SUBCUTANEOUS
     Route: 058
     Dates: start: 20040211
  2. LOPRESSOR (METROPROLOL TARTRATE) [Concomitant]
  3. ABILIFY [Concomitant]
  4. LEXAPRO [Concomitant]
  5. PROVIGIL [Concomitant]
  6. TRILEPTAL [Concomitant]
  7. SEROQUEL [Concomitant]
  8. DARVOCET-N (PROPACET) [Concomitant]

REACTIONS (5)
  - BASAL CELL CARCINOMA [None]
  - DIZZINESS [None]
  - INJECTION SITE ERYTHEMA [None]
  - OEDEMA PERIPHERAL [None]
  - PAIN [None]
